FAERS Safety Report 7574746-0 (Version None)
Quarter: 2011Q2

REPORT INFORMATION
  Report Type: 
  Country: None (occurrence: None)
  Receive Date: 20110627
  Receipt Date: 20110520
  Transmission Date: 20111010
  Serious: Yes (Other)
  Sender: FDA-Public Use
  Company Number: US-BAYER-201034615NA

PATIENT
  Age: 32 Year
  Sex: Female
  Weight: 63 kg

DRUGS (20)
  1. YAZ [Suspect]
     Indication: PREMENSTRUAL SYNDROME
     Route: 048
     Dates: start: 20010101, end: 20091201
  2. BUPROPION HYDROCHLORIDE [Concomitant]
     Dosage: 300 MG, UNK
  3. ZOLOFT [Concomitant]
     Dosage: 50 MG, UNK
  4. YASMIN [Suspect]
  5. STRATTERA [Concomitant]
     Dosage: 60 UNK, UNK
  6. ADDERALL XR 10 [Concomitant]
     Dosage: 5 MG, UNK
  7. ZELNORM [Concomitant]
     Dosage: 6 MG, UNK
  8. TOPAMAX [Concomitant]
     Dosage: 50 MG, UNK
  9. PHENAZOPYRIDINE HCL TAB [Concomitant]
     Dosage: 100 MG, UNK
  10. ZEGERID [Concomitant]
  11. CIPROFLOXACIN [Concomitant]
     Dosage: 250 MG, UNK
  12. METHYLPHENIDATE [Concomitant]
     Dosage: 20 MG/9H
     Route: 062
  13. WELLBUTRIN [Concomitant]
     Indication: DEPRESSION
     Dosage: UNK
     Dates: start: 20010701
  14. CYCLOBENZAPRINE [Concomitant]
     Dosage: 10 MG, UNK
  15. BISACODYL [Concomitant]
     Dosage: 5 MG, UNK
  16. NITROFURANTOIN [Concomitant]
  17. YAZ [Suspect]
  18. YASMIN [Suspect]
     Indication: PREMENSTRUAL SYNDROME
     Route: 048
     Dates: start: 20010101, end: 20091201
  19. ALPRAZOLAM [Concomitant]
     Dosage: 0.5 MG, UNK
  20. HYDROCODONE BITARTRATE AND ACETAMINOPHEN [Concomitant]

REACTIONS (2)
  - GALLBLADDER DISORDER [None]
  - CHOLECYSTITIS CHRONIC [None]
